FAERS Safety Report 24427685 (Version 2)
Quarter: 2024Q4

REPORT INFORMATION
  Report Type: Spontaneous
  Country: GB (occurrence: PT)
  Receive Date: 20241011
  Receipt Date: 20241101
  Transmission Date: 20250114
  Serious: Yes (Death, Other)
  Sender: GILEAD
  Company Number: None

PATIENT
  Age: 51 Year
  Sex: Male

DRUGS (3)
  1. EMTRICITABINE [Suspect]
     Active Substance: EMTRICITABINE
     Indication: Adverse drug reaction
     Dosage: 1 DOSAGE FORM [200/245MG ONCE A DAY]
     Route: 065
  2. DARUNAVIR [Suspect]
     Active Substance: DARUNAVIR
     Indication: Adverse drug reaction
     Dosage: 800MG ONCE A DAY
     Route: 065
  3. RITONAVIR [Suspect]
     Active Substance: RITONAVIR
     Indication: Adverse drug reaction
     Dosage: 100MG ONCE A DAY
     Route: 065

REACTIONS (2)
  - Status epilepticus [Fatal]
  - Epilepsy [Unknown]

NARRATIVE: CASE EVENT DATE: 20241008
